FAERS Safety Report 11985688 (Version 1)
Quarter: 2016Q1

REPORT INFORMATION
  Report Type: Spontaneous
  Country: US (occurrence: US)
  Receive Date: 20160201
  Receipt Date: 20160201
  Transmission Date: 20160526
  Serious: No
  Sender: FDA-Public Use
  Company Number: US-AMGEN-USASP2016008595

PATIENT
  Age: 33 Year
  Sex: Female

DRUGS (1)
  1. ENBREL [Suspect]
     Active Substance: ETANERCEPT
     Indication: PRODUCT USED FOR UNKNOWN INDICATION
     Dosage: 50 MG, UNK
     Route: 065

REACTIONS (8)
  - Rash [Unknown]
  - Incorrect drug administration duration [Unknown]
  - Pain in extremity [Unknown]
  - Dermatitis contact [Unknown]
  - Grip strength decreased [Unknown]
  - Skin fissures [Unknown]
  - Device malfunction [Unknown]
  - Peripheral swelling [Unknown]
